FAERS Safety Report 4611557-X (Version None)
Quarter: 2005Q1

REPORT INFORMATION
  Report Type: 
  Country: None (occurrence: None)
  Receive Date: 20050316
  Receipt Date: 20050316
  Transmission Date: 20050727
  Serious: Yes (Hospitalization)
  Sender: FDA-Public Use
  Company Number: None

PATIENT
  Age: 23 Year
  Sex: Female
  Weight: 65.318 kg

DRUGS (1)
  1. DEPO-PROVERA [Suspect]
     Indication: CONTRACEPTION
     Dates: start: 20050308

REACTIONS (1)
  - GUILLAIN-BARRE SYNDROME [None]
